FAERS Safety Report 7751303-4 (Version None)
Quarter: 2011Q3

REPORT INFORMATION
  Report Type: 
  Country: None (occurrence: None)
  Receive Date: 20110914
  Receipt Date: 20110905
  Transmission Date: 20111222
  Serious: Yes (Hospitalization)
  Sender: FDA-Public Use
  Company Number: JP-CELGENEUS-087-21660-11083089

PATIENT
  Sex: Male
  Weight: 57 kg

DRUGS (7)
  1. FERROUS CITRATE [Concomitant]
     Dosage: 200 MILLIGRAM
     Route: 048
  2. MAGMITT [Concomitant]
     Indication: PROPHYLAXIS
     Dosage: 1500 MILLIGRAM
     Route: 048
  3. LANSOPRAZOLE [Concomitant]
     Dosage: 30 MILLIGRAM
     Route: 048
  4. ABRAXANE [Suspect]
     Indication: GASTRIC CANCER
     Dosage: 293 MILLIGRAM
     Route: 041
     Dates: start: 20110812, end: 20110812
  5. DAI-KENCHU-TO [Concomitant]
     Indication: PROPHYLAXIS
     Dosage: 7.5 GRAM
     Route: 048
  6. TELEMINSOFT [Concomitant]
     Indication: CONSTIPATION
     Route: 065
     Dates: start: 20110822
  7. TS-1 [Suspect]
     Indication: GASTRIC CANCER
     Dosage: 120 MILLIGRAM
     Route: 048
     Dates: start: 20110812, end: 20110825

REACTIONS (2)
  - NAUSEA [None]
  - DECREASED APPETITE [None]
